FAERS Safety Report 15278153 (Version 1)
Quarter: 2018Q3

REPORT INFORMATION
  Report Type: Spontaneous
  Country: NL (occurrence: NL)
  Receive Date: 20180814
  Receipt Date: 20180814
  Transmission Date: 20181010
  Serious: Yes (Hospitalization)
  Sender: FDA-Public Use
  Company Number: NL-TEVA-2018-NL-940495

PATIENT

DRUGS (5)
  1. LEUCOVORIN. [Suspect]
     Active Substance: LEUCOVORIN
     Indication: COLORECTAL CANCER
     Dosage: DATE OF MOST RECENT DOSE PRIOR TO EVENT 28/NOV/2016
     Route: 042
     Dates: start: 20160527
  2. OXALIPLATIN. [Suspect]
     Active Substance: OXALIPLATIN
     Indication: COLORECTAL CANCER
     Dosage: DATE OF MOST RECENT DOSE PRIOR TO EVENT 28/NOV/2016
     Route: 042
     Dates: start: 20160527
  3. 5?FU [Suspect]
     Active Substance: FLUOROURACIL
     Indication: COLORECTAL CANCER
     Dosage: DATE OF MOST RECENT DOSE PRIOR TO EVENT 28/NOV/2016
     Route: 040
     Dates: start: 20160527
  4. 5?FU [Suspect]
     Active Substance: FLUOROURACIL
     Dosage: DATE OF MOST RECEN DOSE PRIOR TO EVENT 28/NOV/2016
     Route: 042
     Dates: start: 20160527
  5. AVASTIN [Suspect]
     Active Substance: BEVACIZUMAB
     Indication: COLORECTAL CANCER
     Dosage: DATE OF MOST RECENT DOSE PRIOR TO EVENT 28/NOV/2016
     Route: 042
     Dates: start: 20160627

REACTIONS (1)
  - Pulmonary embolism [Recovered/Resolved]

NARRATIVE: CASE EVENT DATE: 20161207
